FAERS Safety Report 7355379-8 (Version None)
Quarter: 2011Q1

REPORT INFORMATION
  Report Type: 
  Country: None (occurrence: None)
  Receive Date: 20110316
  Receipt Date: 20110307
  Transmission Date: 20110831
  Serious: Yes (Other)
  Sender: FDA-Public Use
  Company Number: US-AMGEN-USASP2011012853

PATIENT
  Age: 75 Year
  Sex: Male

DRUGS (1)
  1. ENBREL [Suspect]
     Indication: PSORIASIS
     Dosage: 50 MG, QWK
     Dates: start: 20090101, end: 20110222

REACTIONS (6)
  - MOOD ALTERED [None]
  - DYSPNOEA [None]
  - PERSONALITY CHANGE [None]
  - SLEEP DISORDER [None]
  - PRURITUS [None]
  - APATHY [None]
